FAERS Safety Report 13150310 (Version 1)
Quarter: 2017Q1

REPORT INFORMATION
  Report Type: Spontaneous
  Country: US (occurrence: US)
  Receive Date: 20170125
  Receipt Date: 20170125
  Transmission Date: 20170428
  Serious: No
  Sender: FDA-Public Use
  Company Number: US-BAYER-2017-014695

PATIENT
  Age: 66 Year
  Sex: Male
  Weight: 113 kg

DRUGS (2)
  1. LOTRIMIN [Suspect]
     Active Substance: CLOTRIMAZOLE
     Route: 065
  2. LOTRIMIN ULTRA [Suspect]
     Active Substance: BUTENAFINE HYDROCHLORIDE
     Route: 065
     Dates: end: 201612

REACTIONS (1)
  - Product use issue [Unknown]
